FAERS Safety Report 25724197 (Version 1)
Quarter: 2025Q3

REPORT INFORMATION
  Report Type: Spontaneous
  Country: AR (occurrence: AR)
  Receive Date: 20250826
  Receipt Date: 20250826
  Transmission Date: 20251021
  Serious: Yes (Other)
  Sender: NOVARTIS
  Company Number: AR-002147023-NVSC2025AR128122

PATIENT
  Age: 65 Year
  Sex: Female

DRUGS (1)
  1. TASIGNA [Suspect]
     Active Substance: NILOTINIB
     Indication: Chronic myeloid leukaemia
     Route: 065

REACTIONS (6)
  - Leukaemia [Unknown]
  - White blood cell count increased [Unknown]
  - Adverse drug reaction [Unknown]
  - Splenomegaly [Unknown]
  - Headache [Unknown]
  - Drug ineffective [Unknown]
